FAERS Safety Report 4765973-6 (Version None)
Quarter: 2005Q3

REPORT INFORMATION
  Report Type: 
  Country: None (occurrence: None)
  Receive Date: 20050912
  Receipt Date: 20050513
  Transmission Date: 20060218
  Serious: Yes (Other)
  Sender: FDA-Public Use
  Company Number: PHNU2005DE01960

PATIENT
  Age: 68 Year
  Sex: Female
  Weight: 80 kg

DRUGS (20)
  1. TEGRETOL [Suspect]
     Dosage: UNK, UNK
     Route: 048
     Dates: start: 20050301, end: 20050301
  2. VOLTAREN DISPERS ^NOVARTIS^ [Concomitant]
     Dosage: 1 DF, QD
     Route: 048
     Dates: start: 20050301, end: 20050314
  3. VOLTAREN DISPERS ^NOVARTIS^ [Concomitant]
     Dosage: 1 DF, BID
     Route: 048
     Dates: start: 20050317
  4. NEXIUM [Concomitant]
     Dosage: 1 DF, QD
     Dates: start: 20050311
  5. DELIX [Concomitant]
     Indication: BLOOD PRESSURE INCREASED
     Dosage: 2.5 MG, QD
     Dates: start: 20050319, end: 20050319
  6. DELIX [Concomitant]
     Dosage: 1.25 MG, QD
     Dates: start: 20050320
  7. NEUROTRAT [Concomitant]
     Dosage: 1 DF, QD
  8. IBUPROFEN [Concomitant]
     Dosage: 2 DF, QD
     Dates: start: 20050314, end: 20050314
  9. IBUPROFEN [Concomitant]
     Dosage: 2 DF, BID
     Route: 048
     Dates: start: 20050315, end: 20050317
  10. DILTIAZEM [Concomitant]
     Dosage: 1 DF, QD, NO INTAKE ON 11 MAR 2005
  11. DELIX [Concomitant]
  12. TRENTAL ^AVENTIS PHARMA^ [Concomitant]
     Dosage: 400 MG, BID
     Dates: end: 20050301
  13. TRENTAL ^AVENTIS PHARMA^ [Concomitant]
     Dosage: 400 MG, BID
     Dates: start: 20050301
  14. DELIX PLUS [Concomitant]
     Indication: BLOOD PRESSURE INCREASED
     Dosage: 1.25 MG, QD
     Dates: start: 20050315, end: 20050320
  15. DELIX PLUS [Concomitant]
     Dosage: 5 MG, QD
     Dates: start: 20050321
  16. NEURO-RATIOPHARM FILMTABLETTEN [Concomitant]
     Dosage: 1 DF, QD, NO INTAKE ON 11 MAR 2005
  17. NITRO-SPRAY [Concomitant]
     Indication: BLOOD PRESSURE INCREASED
     Dates: start: 20050316, end: 20050316
  18. NITRO-SPRAY [Concomitant]
     Dates: start: 20050319, end: 20050319
  19. BAYOTENSIN AKUT [Concomitant]
     Indication: BLOOD PRESSURE INCREASED
     Dosage: UNK, ONCE/SINGLE
     Dates: start: 20050319, end: 20050319
  20. ADALAT [Concomitant]
     Indication: BLOOD PRESSURE INCREASED
     Dosage: UNK, ONCE/SINGLE
     Dates: start: 20050321, end: 20050321

REACTIONS (25)
  - ALANINE AMINOTRANSFERASE INCREASED [None]
  - ASPARTATE AMINOTRANSFERASE INCREASED [None]
  - BLOOD POTASSIUM DECREASED [None]
  - CEREBRAL DISORDER [None]
  - CONTUSION [None]
  - DIARRHOEA [None]
  - DIZZINESS [None]
  - DRUG LEVEL ABOVE THERAPEUTIC [None]
  - DRUG TOXICITY [None]
  - ELECTROENCEPHALOGRAM ABNORMAL [None]
  - FALL [None]
  - FATIGUE [None]
  - GAMMA-GLUTAMYLTRANSFERASE INCREASED [None]
  - GENERAL PHYSICAL CONDITION ABNORMAL [None]
  - HYPERTENSION [None]
  - INDIFFERENCE [None]
  - MEDICATION ERROR [None]
  - NAUSEA [None]
  - PERIPHERAL VASCULAR DISORDER [None]
  - PHOTOPSIA [None]
  - SPEECH DISORDER [None]
  - TRAUMATIC HAEMATOMA [None]
  - UNRESPONSIVE TO VERBAL STIMULI [None]
  - VISUAL DISTURBANCE [None]
  - VOMITING [None]
